FAERS Safety Report 23110182 (Version 2)
Quarter: 2023Q4

REPORT INFORMATION
  Report Type: Spontaneous
  Country: US (occurrence: US)
  Receive Date: 20231026
  Receipt Date: 20231115
  Transmission Date: 20240109
  Serious: No
  Sender: FDA-Public Use
  Company Number: US-LUPIN PHARMACEUTICALS INC.-2023-09398

PATIENT

DRUGS (1)
  1. HYDROCODONE BITARTRATE AND ACETAMINOPHEN [Suspect]
     Active Substance: ACETAMINOPHEN\HYDROCODONE BITARTRATE
     Indication: Pain
     Dosage: 1 DOSAGE FORM, QID, 1 TABLET FOUR TIMES DAILY BY MOUTH
     Route: 048
     Dates: start: 2023

REACTIONS (2)
  - Fatigue [Recovered/Resolved]
  - Drug screen false positive [Unknown]
